FAERS Safety Report 21040051 (Version 1)
Quarter: 2022Q3

REPORT INFORMATION
  Report Type: Spontaneous
  Country: IL (occurrence: IL)
  Receive Date: 20220704
  Receipt Date: 20220704
  Transmission Date: 20221027
  Serious: Yes (Life-Threatening, Hospitalization, Other)
  Sender: FDA-Public Use
  Company Number: IL-AMGEN-ISRSP2022111271

PATIENT

DRUGS (3)
  1. ROMIPLOSTIM [Suspect]
     Active Substance: ROMIPLOSTIM
     Indication: Bone marrow failure
     Route: 065
  2. ROMIPLOSTIM [Suspect]
     Active Substance: ROMIPLOSTIM
     Indication: Off label use
  3. FILGRASTIM [Suspect]
     Active Substance: FILGRASTIM
     Indication: Product used for unknown indication
     Route: 065

REACTIONS (20)
  - Fungal infection [Unknown]
  - Septic shock [Unknown]
  - Escherichia infection [Unknown]
  - Klebsiella infection [Unknown]
  - Enterococcal infection [Unknown]
  - Staphylococcal infection [Unknown]
  - Pseudomonas infection [Unknown]
  - Otitis media [Unknown]
  - Osteomyelitis [Unknown]
  - Rhinovirus infection [Unknown]
  - Klebsiella infection [Unknown]
  - Hypogammaglobulinaemia [Unknown]
  - Immune effector cell-associated neurotoxicity syndrome [Unknown]
  - Cytokine release syndrome [Unknown]
  - Urinary tract infection [Unknown]
  - Haemorrhage [Unknown]
  - Thrombocytopenia [Recovering/Resolving]
  - Drug effective for unapproved indication [Unknown]
  - Hepatic enzyme increased [Unknown]
  - Off label use [Unknown]
